FAERS Safety Report 13282028 (Version 1)
Quarter: 2017Q1

REPORT INFORMATION
  Report Type: Spontaneous
  Country: US (occurrence: US)
  Receive Date: 20170301
  Receipt Date: 20170301
  Transmission Date: 20170428
  Serious: Yes (Hospitalization)
  Sender: FDA-Public Use
  Company Number: None

PATIENT
  Age: 66 Year
  Sex: Female

DRUGS (1)
  1. JANTOVEN [Suspect]
     Active Substance: WARFARIN SODIUM

REACTIONS (8)
  - Haemorrhage intracranial [None]
  - International normalised ratio decreased [None]
  - International normalised ratio increased [None]
  - Hemiparesis [None]
  - Seizure [None]
  - Mental status changes [None]
  - Lethargy [None]
  - Fall [None]

NARRATIVE: CASE EVENT DATE: 20160919
